FAERS Safety Report 5620747-9 (Version None)
Quarter: 2008Q1

REPORT INFORMATION
  Report Type: 
  Country: None (occurrence: None)
  Receive Date: 20080208
  Receipt Date: 20080206
  Transmission Date: 20080703
  Serious: Yes (Other)
  Sender: FDA-Public Use
  Company Number: DE-PFIZER INC-2008011645

PATIENT
  Age: 16 Year
  Sex: Male

DRUGS (2)
  1. ZOLOFT [Suspect]
     Dosage: DAILY DOSE:150MG
     Route: 048
  2. MELNEURIN [Suspect]
     Route: 048

REACTIONS (2)
  - GASTROENTERITIS NOROVIRUS [None]
  - TRANSAMINASES INCREASED [None]
